FAERS Safety Report 25077180 (Version 1)
Quarter: 2025Q1

REPORT INFORMATION
  Report Type: Spontaneous
  Country: US (occurrence: US)
  Receive Date: 20250314
  Receipt Date: 20250314
  Transmission Date: 20250409
  Serious: No
  Sender: SANOFI AVENTIS
  Company Number: US-SA-2025SA072114

PATIENT
  Age: 17 Year
  Sex: Female

DRUGS (2)
  1. DUPIXENT [Suspect]
     Active Substance: DUPILUMAB
     Indication: Eczema
     Route: 058
     Dates: start: 202411, end: 202411
  2. DUPIXENT [Suspect]
     Active Substance: DUPILUMAB
     Dosage: 300 MG, QOW
     Route: 058
     Dates: start: 202411

REACTIONS (7)
  - Eczema [Not Recovered/Not Resolved]
  - Therapeutic response shortened [Unknown]
  - Erythema [Not Recovered/Not Resolved]
  - Skin fissures [Not Recovered/Not Resolved]
  - Skin erosion [Not Recovered/Not Resolved]
  - Condition aggravated [Not Recovered/Not Resolved]
  - Product storage error [Unknown]

NARRATIVE: CASE EVENT DATE: 20250101
